FAERS Safety Report 7386067-X (Version None)
Quarter: 2011Q1

REPORT INFORMATION
  Report Type: 
  Country: None (occurrence: None)
  Receive Date: 20110331
  Receipt Date: 20110321
  Transmission Date: 20110831
  Serious: Yes (Hospitalization, Other)
  Sender: FDA-Public Use
  Company Number: US-JNJFOC-20110309567

PATIENT
  Age: 37 Year
  Sex: Female
  Weight: 72.58 kg

DRUGS (17)
  1. SIMVASTATIN [Concomitant]
     Indication: PRODUCT USED FOR UNKNOWN INDICATION
     Route: 065
  2. XANAX [Suspect]
     Indication: HEADACHE
     Route: 048
  3. NEURONTIN [Suspect]
     Indication: MIGRAINE
     Route: 048
  4. XANAX [Suspect]
     Indication: MIGRAINE
     Route: 048
  5. ZOLOFT [Suspect]
     Indication: DEPRESSION
     Route: 048
  6. COREG [Concomitant]
     Indication: PRODUCT USED FOR UNKNOWN INDICATION
     Route: 065
  7. TOPAMAX [Suspect]
     Indication: DEPRESSION
     Route: 048
  8. XANAX [Suspect]
     Indication: DEPRESSION
     Route: 048
  9. EFFEXOR [Suspect]
     Indication: MIGRAINE
     Route: 048
  10. EFFEXOR [Suspect]
     Route: 048
  11. LISINOPRIL [Concomitant]
     Indication: PRODUCT USED FOR UNKNOWN INDICATION
     Route: 065
  12. XANAX [Suspect]
     Indication: ANXIETY
     Route: 048
  13. NEURONTIN [Suspect]
     Indication: DEPRESSION
     Route: 048
  14. ZOLOFT [Suspect]
     Indication: MIGRAINE
     Route: 048
  15. EFFEXOR [Suspect]
     Route: 048
  16. TOPAMAX [Suspect]
     Indication: MIGRAINE PROPHYLAXIS
     Route: 048
  17. EFFEXOR [Suspect]
     Indication: DEPRESSION
     Route: 048

REACTIONS (7)
  - HYPERSENSITIVITY [None]
  - CEREBROVASCULAR ACCIDENT [None]
  - CARTILAGE INJURY [None]
  - MIGRAINE [None]
  - CARDIAC DISORDER [None]
  - BLOOD CHOLESTEROL INCREASED [None]
  - HYPERTENSION [None]
